FAERS Safety Report 12252879 (Version 3)
Quarter: 2016Q2

REPORT INFORMATION
  Report Type: Report from Study
  Country: US (occurrence: US)
  Receive Date: 20160411
  Receipt Date: 20160510
  Transmission Date: 20160815
  Serious: No
  Sender: FDA-Public Use
  Company Number: US-AMGEN-USASL2016042638

PATIENT
  Age: 63 Year
  Sex: Female

DRUGS (1)
  1. ENBREL [Suspect]
     Active Substance: ETANERCEPT
     Indication: RHEUMATOID ARTHRITIS
     Dosage: UNK UNK, WEEKLY
     Route: 065
     Dates: start: 20160314, end: 20160415

REACTIONS (5)
  - Toothache [Unknown]
  - Arthropathy [Not Recovered/Not Resolved]
  - Sinusitis [Recovered/Resolved]
  - Inappropriate schedule of drug administration [Unknown]
  - Headache [Unknown]

NARRATIVE: CASE EVENT DATE: 2016
